FAERS Safety Report 11161441 (Version 1)
Quarter: 2015Q2

REPORT INFORMATION
  Report Type: Spontaneous
  Country: US (occurrence: US)
  Receive Date: 20150604
  Receipt Date: 20150604
  Transmission Date: 20150821
  Serious: No
  Sender: FDA-Public Use
  Company Number: US-SA-2014SA091860

PATIENT
  Age: 57 Year
  Sex: Female

DRUGS (3)
  1. LANTUS SOLOSTAR [Suspect]
     Active Substance: INSULIN GLARGINE
     Indication: TYPE 2 DIABETES MELLITUS
     Dosage: DOSE:15 UNIT(S)
     Route: 065
     Dates: start: 201308
  2. VICTOZA [Concomitant]
     Active Substance: LIRAGLUTIDE
  3. SOLOSTAR [Concomitant]
     Active Substance: DEVICE

REACTIONS (1)
  - Injury associated with device [Unknown]
